FAERS Safety Report 6804891-6 (Version None)
Quarter: 2010Q2

REPORT INFORMATION
  Report Type: 
  Country: None (occurrence: None)
  Receive Date: 20100628
  Receipt Date: 20100615
  Transmission Date: 20101027
  Serious: Yes (Hospitalization)
  Sender: FDA-Public Use
  Company Number: JP-ROCHE-710747

PATIENT
  Sex: Female

DRUGS (17)
  1. MYCOPHENOLATE MOFETIL [Suspect]
     Indication: PROPHYLAXIS AGAINST TRANSPLANT REJECTION
     Route: 048
     Dates: start: 20050815, end: 20050815
  2. MYCOPHENOLATE MOFETIL [Suspect]
     Route: 048
     Dates: start: 20050816
  3. MYCOPHENOLATE MOFETIL [Suspect]
     Route: 048
     Dates: start: 20060825
  4. PROGRAF [Suspect]
     Dosage: NOTE: 2-14 MG/DAY.
     Route: 048
     Dates: start: 20050815
  5. METHYLPREDNISOLONE SODIUM SUCCINATE [Concomitant]
     Dosage: NOTE: 625-125 MG/DAY.
     Route: 041
     Dates: start: 20050815, end: 20050909
  6. MEROPEN [Concomitant]
     Dosage: ROUTE: INTRAVENOUS (NOT OTHERWISE SPECIFIED).
     Route: 041
     Dates: start: 20050815, end: 20050821
  7. GASTER [Concomitant]
     Dosage: ROUTE: INTRAVENOUS (NOT OTHERWISE SPECIFIED).
     Route: 041
     Dates: start: 20050815, end: 20050915
  8. MINOCYCLINE HCL [Concomitant]
     Dosage: ROUTE: INTRAVENOUS (NOT OTHERWISE SPECIFIED).
     Route: 041
     Dates: start: 20050816, end: 20050820
  9. PREDNISOLONE [Concomitant]
     Dosage: NOTE: 12.5-30 MG/DAY. FORM: PERORAL AGENT.
     Route: 048
     Dates: start: 20050820
  10. PREDNISOLONE [Concomitant]
     Route: 048
  11. PRODIF [Concomitant]
     Dosage: ROUTE: INTRAVENOUS (NOT OTHERWISE SPECIFIED).
     Route: 042
     Dates: start: 20050822, end: 20050915
  12. DENOSINE [Concomitant]
     Dosage: ROUTE: INTRAVENOUS (NOT OTHERWISE SPECIFIED).
     Route: 042
     Dates: start: 20050822, end: 20050911
  13. COTRIM [Concomitant]
     Dosage: DOSE: 2DF, DOSE FORM: PERORAL AGENT.
     Route: 048
     Dates: start: 20050905
  14. VALGANCICLOVIR HCL [Concomitant]
     Route: 048
     Dates: start: 20050912, end: 20051115
  15. DIFLUCAN [Concomitant]
     Route: 048
     Dates: start: 20050916
  16. GASTER [Concomitant]
     Dosage: DOSE FORM: PERORAL AGENT.
     Route: 048
     Dates: start: 20050916, end: 20071030
  17. ZOVIRAX [Concomitant]
     Dosage: DOSE FORM: PERORAL AGENT.
     Route: 048
     Dates: start: 20051116

REACTIONS (4)
  - CACHEXIA [None]
  - DECREASED APPETITE [None]
  - DEPRESSION [None]
  - REFLUX OESOPHAGITIS [None]
